FAERS Safety Report 10506990 (Version 1)
Quarter: 2014Q3

REPORT INFORMATION
  Report Type: Spontaneous
  Country: US (occurrence: None)
  Receive Date: 20140915
  Receipt Date: 20140915
  Transmission Date: 20150326
  Serious: Yes (Other)
  Sender: FDA-Public Use
  Company Number: 2014-US-004708

PATIENT
  Age: 62 Year
  Sex: Female
  Weight: 93.4 kg

DRUGS (8)
  1. ANASTROZOLE(ANASTROZOLE) [Concomitant]
  2. DIPHENOXYLATE/ATROPINE(ATROPINE SULFATE, DIPHENOXYLATE HYDROCHLORIDE) [Concomitant]
  3. AMLODIPINE(AMLODIPINE BESILATE) [Concomitant]
  4. XYREM [Suspect]
     Active Substance: SODIUM OXYBATE
     Indication: NARCOLEPSY
     Route: 048
     Dates: start: 20140408, end: 20140413
  5. PROLIA(DENOSUMAB) [Concomitant]
  6. LOSARTAN(LOSARTAN POTASSIUM) [Concomitant]
  7. BUPROPION(BUPROPION HYDROCHLORIDE) [Concomitant]
  8. SIMVASTATIN. [Concomitant]
     Active Substance: SIMVASTATIN

REACTIONS (4)
  - Tremor [None]
  - Feeling cold [None]
  - Hypertension [None]
  - Drug dose omission [None]

NARRATIVE: CASE EVENT DATE: 20140408
